FAERS Safety Report 9698181 (Version 1)
Quarter: 2013Q4

REPORT INFORMATION
  Report Type: Spontaneous
  Country: ES (occurrence: ES)
  Receive Date: 20131120
  Receipt Date: 20131120
  Transmission Date: 20140711
  Serious: Yes (Hospitalization)
  Sender: FDA-Public Use
  Company Number: ES-VERTEX PHARMACEUTICALS INC-2013-011202

PATIENT
  Age: 60 Year
  Sex: Female

DRUGS (5)
  1. INCIVO [Suspect]
     Indication: HEPATITIS C
     Dosage: 1125 MG, BID
     Route: 048
     Dates: start: 20130919
  2. PEGASYS [Suspect]
     Indication: HEPATITIS C
     Dosage: 180 ?G, QW
     Route: 058
     Dates: start: 20130919
  3. REBETOL [Suspect]
     Indication: HEPATITIS C
     Dosage: 600 MG, BID
     Route: 048
     Dates: start: 20130919
  4. LEVEMIR [Concomitant]
     Indication: TYPE 1 DIABETES MELLITUS
     Dosage: DOSAGE FORM: UNSPECIFIED, ^25-0-0^
     Route: 065
  5. INSULIN RAPID [Concomitant]
     Indication: TYPE 1 DIABETES MELLITUS
     Dosage: DOSAGE FORM: UNSPECIFIED, ^0-14-20^
     Route: 065

REACTIONS (4)
  - Cachexia [Recovered/Resolved]
  - Anaemia [Recovered/Resolved]
  - Anal pruritus [Recovered/Resolved]
  - Proctalgia [Recovered/Resolved]
